FAERS Safety Report 15076799 (Version 1)
Quarter: 2018Q3

REPORT INFORMATION
  Report Type: Spontaneous
  Country: ZA (occurrence: ZA)
  Receive Date: 20180627
  Receipt Date: 20180627
  Transmission Date: 20181010
  Serious: Yes (Other)
  Sender: FDA-Public Use
  Company Number: ZA-PFIZER INC-2018255696

PATIENT
  Age: 80 Year
  Sex: Male

DRUGS (6)
  1. EPANUTIN [Suspect]
     Active Substance: PHENYTOIN SODIUM
  2. MYOPRIL /00574902/ [Suspect]
     Active Substance: ENALAPRIL MALEATE
  3. ASPAVOR [Suspect]
     Active Substance: ATORVASTATIN
     Dosage: UNK
  4. MENGEN [Suspect]
     Active Substance: METFORMIN HYDROCHLORIDE
     Dosage: UNK
  5. ENTERON /00081601/ [Suspect]
     Active Substance: FURAZOLIDONE
     Dosage: UNK
  6. MYLAN PANTOPRAZOLE [Suspect]
     Active Substance: PANTOPRAZOLE SODIUM
     Dosage: UNK

REACTIONS (1)
  - Myocardial infarction [Unknown]

NARRATIVE: CASE EVENT DATE: 201806
